FAERS Safety Report 14346853 (Version 1)
Quarter: 2018Q1

REPORT INFORMATION
  Report Type: Spontaneous
  Country: US (occurrence: US)
  Receive Date: 20180103
  Receipt Date: 20180103
  Transmission Date: 20180509
  Serious: No
  Sender: FDA-Public Use
  Company Number: US-PFIZER INC-2017556252

PATIENT
  Age: 55 Year
  Sex: Female

DRUGS (1)
  1. PREMPRO [Suspect]
     Active Substance: ESTROGENS, CONJUGATED\MEDROXYPROGESTERONE ACETATE
     Indication: OSTEOPOROSIS PROPHYLAXIS
     Dosage: UNK [ESTROGENS CONJUGATED-0.3 MG] [MEDROXYPROGESTERONE ACETATE-1.5 MG]

REACTIONS (5)
  - Influenza [Unknown]
  - Nausea [Unknown]
  - Drug dose omission [Unknown]
  - Malaise [Unknown]
  - Vomiting [Unknown]
